FAERS Safety Report 5843820-9 (Version None)
Quarter: 2008Q3

REPORT INFORMATION
  Report Type: 
  Country: None (occurrence: None)
  Receive Date: 20080813
  Receipt Date: 20080731
  Transmission Date: 20090109
  Serious: Yes (Other)
  Sender: FDA-Public Use
  Company Number: PHHY2008JP13838

PATIENT
  Age: 84 Year
  Sex: Male

DRUGS (5)
  1. DIOVAN [Suspect]
     Indication: HYPERTENSION
     Dosage: 80 MG
     Route: 048
     Dates: start: 20080619
  2. ASPIRIN [Concomitant]
     Route: 048
  3. ALMARL [Concomitant]
     Route: 048
  4. SELBEX [Concomitant]
     Route: 048
  5. CPG [Concomitant]

REACTIONS (2)
  - CEREBRAL INFARCTION [None]
  - DYSARTHRIA [None]
